FAERS Safety Report 21228329 (Version 1)
Quarter: 2022Q3

REPORT INFORMATION
  Report Type: Spontaneous
  Country: CA (occurrence: CA)
  Receive Date: 20220818
  Receipt Date: 20220818
  Transmission Date: 20221027
  Serious: Yes (Death, Other)
  Sender: FDA-Public Use
  Company Number: CA-SAMSUNG BIOEPIS-SB-2022-17377

PATIENT
  Age: 62 Year
  Sex: Female

DRUGS (3)
  1. ADALIMUMAB [Suspect]
     Active Substance: ADALIMUMAB
     Indication: Crohn^s disease
     Route: 058
  2. ADALIMUMAB [Suspect]
     Active Substance: ADALIMUMAB
     Route: 058
  3. ENTOCORT [Concomitant]
     Active Substance: BUDESONIDE
     Indication: Product used for unknown indication
     Dosage: UNKNOWN, CAPSULE, SUSTAINED RELEASE
     Route: 065

REACTIONS (9)
  - Death [Fatal]
  - Muscle spasms [Fatal]
  - Abdominal discomfort [Fatal]
  - Decreased appetite [Fatal]
  - Diarrhoea [Fatal]
  - Blood potassium decreased [Fatal]
  - Intestinal obstruction [Fatal]
  - Therapeutic response decreased [Fatal]
  - Inappropriate schedule of product administration [Fatal]
